FAERS Safety Report 6301333-4 (Version None)
Quarter: 2009Q3

REPORT INFORMATION
  Report Type: 
  Country: None (occurrence: None)
  Receive Date: 20090807
  Receipt Date: 20090728
  Transmission Date: 20100115
  Serious: Yes (Other)
  Sender: FDA-Public Use
  Company Number: FR-PFIZER INC-2009246447

PATIENT
  Age: 40 Day

DRUGS (1)
  1. TRIFLUCAN [Suspect]
     Dosage: 0.7 ML, SINGLE
     Route: 042
     Dates: start: 20090728, end: 20090728

REACTIONS (3)
  - CATHETER RELATED COMPLICATION [None]
  - DRUG ADMINISTRATION ERROR [None]
  - TACHYCARDIA [None]
